FAERS Safety Report 6060871-2 (Version None)
Quarter: 2009Q1

REPORT INFORMATION
  Report Type: 
  Country: None (occurrence: None)
  Receive Date: 20090202
  Receipt Date: 20081231
  Transmission Date: 20090719
  Serious: No
  Sender: FDA-Public Use
  Company Number: US-BAYER-200910061NA

PATIENT
  Age: 20 Year
  Sex: Female

DRUGS (3)
  1. DROSPIRENONE AND ETHINYL ESTRADIOL [Suspect]
     Indication: DRUG USE FOR UNKNOWN INDICATION
     Route: 048
     Dates: start: 20081001, end: 20081223
  2. YASMIN [Suspect]
     Indication: DRUG USE FOR UNKNOWN INDICATION
     Route: 048
  3. SOLODYN [Concomitant]
     Dates: start: 20081230

REACTIONS (6)
  - ABDOMINAL PAIN [None]
  - ACNE [None]
  - ADNEXA UTERI PAIN [None]
  - FACIAL PAIN [None]
  - FEELING ABNORMAL [None]
  - MOOD ALTERED [None]
